FAERS Safety Report 18704531 (Version 1)
Quarter: 2021Q1

REPORT INFORMATION
  Report Type: Spontaneous
  Country: IE (occurrence: IE)
  Receive Date: 20210106
  Receipt Date: 20210106
  Transmission Date: 20210419
  Serious: Yes (Other)
  Sender: FDA-Public Use
  Company Number: IE-TEVA-2020-IE-1865795

PATIENT
  Sex: Female

DRUGS (1)
  1. KENTERA [Suspect]
     Active Substance: OXYBUTYNIN
     Indication: HYPERTONIC BLADDER
     Dosage: ONE PATCH THREE TIMES A WEEK
     Route: 062

REACTIONS (5)
  - Erythema [Recovered/Resolved]
  - Urticaria [Recovered/Resolved]
  - Contusion [Recovered/Resolved]
  - Pruritus [Recovered/Resolved]
  - Vasculitic rash [Recovered/Resolved]
